FAERS Safety Report 7712993-5 (Version None)
Quarter: 2011Q3

REPORT INFORMATION
  Report Type: 
  Country: None (occurrence: None)
  Receive Date: 20110826
  Receipt Date: 20110822
  Transmission Date: 20111222
  Serious: Yes (Hospitalization, Other)
  Sender: FDA-Public Use
  Company Number: FR-JNJFOC-20110611978

PATIENT
  Age: 22 Year
  Sex: Female
  Weight: 55 kg

DRUGS (9)
  1. REMICADE [Suspect]
     Indication: CROHN'S DISEASE
     Route: 042
     Dates: start: 20110210
  2. ATARAX [Concomitant]
     Route: 048
     Dates: start: 20110505
  3. ACETAMINOPHEN [Concomitant]
     Indication: PREMEDICATION
     Route: 042
     Dates: start: 20110712
  4. SOLU-MEDROL [Concomitant]
     Indication: PREMEDICATION
     Route: 042
     Dates: start: 20110712
  5. REMICADE [Suspect]
     Route: 042
     Dates: start: 20110127
  6. REMICADE [Suspect]
     Route: 042
     Dates: start: 20110309
  7. REMICADE [Suspect]
     Route: 042
     Dates: start: 20110505
  8. REMICADE [Suspect]
     Route: 042
     Dates: start: 20110712
  9. ATARAX [Concomitant]
     Indication: PREMEDICATION
     Route: 048
     Dates: start: 20110712

REACTIONS (5)
  - ABDOMINAL PAIN UPPER [None]
  - HYPERHIDROSIS [None]
  - DYSPNOEA [None]
  - INFUSION RELATED REACTION [None]
  - VOMITING [None]
